FAERS Safety Report 5901281-5 (Version None)
Quarter: 2008Q3

REPORT INFORMATION
  Report Type: 
  Country: None (occurrence: None)
  Receive Date: 20080929
  Receipt Date: 20080819
  Transmission Date: 20090109
  Serious: No
  Sender: FDA-Public Use
  Company Number: US-BRISTOL-MYERS SQUIBB COMPANY-14306617

PATIENT
  Age: 61 Year
  Sex: Female
  Weight: 113 kg

DRUGS (19)
  1. ORENCIA [Suspect]
     Indication: RHEUMATOID ARTHRITIS
     Dosage: RECEIVED 6TH INFUSION ON 08AUG08
     Route: 042
     Dates: start: 20080808, end: 20080808
  2. SPIRIVA [Concomitant]
  3. ADVAIR DISKUS 100/50 [Concomitant]
  4. LASIX [Concomitant]
  5. ALDACTONE [Concomitant]
  6. SALAGEN [Concomitant]
  7. METFORMIN HCL [Concomitant]
  8. GLIPIZIDE [Concomitant]
  9. INDERAL [Concomitant]
  10. EFFEXOR [Concomitant]
  11. PLAQUENIL [Concomitant]
  12. SINGULAIR [Concomitant]
  13. NEURONTIN [Concomitant]
  14. METHOCARBAMOL [Concomitant]
  15. FOLIC ACID [Concomitant]
  16. RESTASIS [Concomitant]
  17. TRAZODONE HCL [Concomitant]
  18. PERCOCET [Concomitant]
  19. ESTRADIOL [Concomitant]
     Dosage: HORMONE MONTHLY INJ

REACTIONS (3)
  - FATIGUE [None]
  - HEADACHE [None]
  - HYPERHIDROSIS [None]
